FAERS Safety Report 10057511 (Version 1)
Quarter: 2014Q2

REPORT INFORMATION
  Report Type: Spontaneous
  Country: US (occurrence: US)
  Receive Date: 20140403
  Receipt Date: 20140403
  Transmission Date: 20141212
  Serious: No
  Sender: FDA-Public Use
  Company Number: US-009507513-1404USA000024

PATIENT
  Age: 50 Year
  Sex: Female
  Weight: 58.5 kg

DRUGS (1)
  1. SINGULAIR [Suspect]
     Indication: HYPERSENSITIVITY
     Dosage: 10 MG, QD
     Route: 048
     Dates: end: 20140322

REACTIONS (2)
  - Feeling jittery [Unknown]
  - Drug administration error [Unknown]
